FAERS Safety Report 5547356-4 (Version None)
Quarter: 2007Q4

REPORT INFORMATION
  Report Type: 
  Country: None (occurrence: None)
  Receive Date: 20071211
  Receipt Date: 20071129
  Transmission Date: 20080405
  Serious: Yes (Other)
  Sender: FDA-Public Use
  Company Number: US-PFIZER INC-2007101840

PATIENT
  Sex: Female
  Weight: 99.545 kg

DRUGS (14)
  1. LYRICA [Suspect]
     Indication: NEUROPATHY PERIPHERAL
  2. NEURONTIN [Suspect]
     Indication: NEUROPATHY PERIPHERAL
     Dates: start: 20061101, end: 20061201
  3. VICODIN [Concomitant]
  4. ELAVIL [Concomitant]
  5. IRON [Concomitant]
  6. COZAAR [Concomitant]
  7. SPIRONOLACTONE [Concomitant]
  8. ACETYLSALICYLIC ACID SRT [Concomitant]
  9. STOOL SOFTENER [Concomitant]
  10. VITAMINS [Concomitant]
  11. ALL OTHER THERAPEUTIC PRODUCTS  ALL OTHER THERAPEUTIC PRODUCTS [Concomitant]
  12. METOLAZONE [Concomitant]
  13. LASIX [Concomitant]
  14. METHYLPHENIDATE HCL [Concomitant]

REACTIONS (2)
  - ACTIVITIES OF DAILY LIVING IMPAIRED [None]
  - FALL [None]
